FAERS Safety Report 9079866 (Version 1)
Quarter: 2013Q1

REPORT INFORMATION
  Report Type: Spontaneous
  Country: DE (occurrence: DE)
  Receive Date: 20130215
  Receipt Date: 20130215
  Transmission Date: 20140127
  Serious: Yes (Hospitalization)
  Sender: FDA-Public Use
  Company Number: DE-GLAXOSMITHKLINE-D0078703A

PATIENT
  Sex: Female

DRUGS (3)
  1. REQUIP-MODUTAB [Suspect]
     Indication: PARKINSON^S DISEASE
     Route: 048
  2. ANTI-PARKINSON^S DISEASE MEDICATION [Concomitant]
     Indication: PARKINSON^S DISEASE
     Route: 065
  3. ANTI-EPILEPTIC MEDICATION [Concomitant]
     Indication: EPILEPSY
     Route: 065

REACTIONS (3)
  - Parkinson^s disease [Unknown]
  - Status epilepticus [Unknown]
  - Blood pressure fluctuation [Unknown]
